FAERS Safety Report 8396642-1 (Version None)
Quarter: 2012Q1

REPORT INFORMATION
  Report Type: 
  Country: None (occurrence: None)
  Receive Date: 20120323
  Receipt Date: 20110524
  Transmission Date: 20120608
  Serious: Yes (Hospitalization, Other)
  Sender: FDA-Public Use
  Company Number: 163-21880-11040112

PATIENT
  Age: 70 Year
  Sex: Male

DRUGS (5)
  1. BLOOD (BLOOD AND RELATED PRODUCTS) (INJECTION) [Concomitant]
  2. REVLIMID [Suspect]
     Indication: MULTIPLE MYELOMA
     Dosage: 25 MG, 1 IN 1 D, PO    25-15MG, DAILY PO    10 MG, 1 IN 1 D, PO
     Route: 048
     Dates: start: 20061101
  3. REVLIMID [Suspect]
     Indication: MULTIPLE MYELOMA
     Dosage: 25 MG, 1 IN 1 D, PO    25-15MG, DAILY PO    10 MG, 1 IN 1 D, PO
     Route: 048
     Dates: start: 20090201
  4. REVLIMID [Suspect]
     Indication: MULTIPLE MYELOMA
     Dosage: 25 MG, 1 IN 1 D, PO    25-15MG, DAILY PO    10 MG, 1 IN 1 D, PO
     Route: 048
     Dates: start: 20090701
  5. REVLIMID [Suspect]
     Indication: MULTIPLE MYELOMA
     Dosage: 25 MG, 1 IN 1 D, PO    25-15MG, DAILY PO    10 MG, 1 IN 1 D, PO
     Route: 048
     Dates: start: 20100701

REACTIONS (3)
  - ANAEMIA [None]
  - PLATELET COUNT DECREASED [None]
  - PNEUMONIA [None]
